FAERS Safety Report 25369432 (Version 1)
Quarter: 2025Q2

REPORT INFORMATION
  Report Type: Spontaneous
  Country: US (occurrence: US)
  Receive Date: 20250528
  Receipt Date: 20250528
  Transmission Date: 20250717
  Serious: No
  Sender: LUPIN
  Company Number: US-LUPIN PHARMACEUTICALS INC.-2025-04428

PATIENT
  Age: 73 Year

DRUGS (2)
  1. BUDESONIDE [Suspect]
     Active Substance: BUDESONIDE
     Indication: Lung disorder
  2. BUDESONIDE [Suspect]
     Active Substance: BUDESONIDE
     Indication: Cough

REACTIONS (2)
  - Off label use [Unknown]
  - Wrong technique in product usage process [Unknown]
